FAERS Safety Report 4946462-2 (Version None)
Quarter: 2006Q1

REPORT INFORMATION
  Report Type: 
  Country: None (occurrence: None)
  Receive Date: 20060313
  Receipt Date: 20060228
  Transmission Date: 20060701
  Serious: Yes (Other)
  Sender: FDA-Public Use
  Company Number: 2006032292

PATIENT
  Sex: Female

DRUGS (1)
  1. CELEBREX [Suspect]
     Indication: OSTEOPOROSIS
     Dosage: 200 MG (200 MG, 1 IN 1 D)
     Dates: start: 20030101

REACTIONS (5)
  - HYPERTONIC BLADDER [None]
  - KNEE ARTHROPLASTY [None]
  - OSTEOARTHRITIS [None]
  - SHOULDER ARTHROPLASTY [None]
  - TREATMENT NONCOMPLIANCE [None]
